FAERS Safety Report 12616667 (Version 1)
Quarter: 2016Q3

REPORT INFORMATION
  Report Type: Report from Study
  Country: GT (occurrence: GT)
  Receive Date: 20160802
  Receipt Date: 20160802
  Transmission Date: 20161109
  Serious: Yes (Hospitalization)
  Sender: FDA-Public Use
  Company Number: PHHY2014GT136861

PATIENT
  Age: 42 Year
  Sex: Female

DRUGS (1)
  1. GILENYA [Suspect]
     Active Substance: FINGOLIMOD HYDROCHLORIDE
     Indication: PRODUCT USED FOR UNKNOWN INDICATION
     Dosage: 0.5 MG, UNK
     Route: 065

REACTIONS (6)
  - Eye pain [Not Recovered/Not Resolved]
  - Head discomfort [Unknown]
  - Asthenia [Unknown]
  - Vertigo [Unknown]
  - Headache [Not Recovered/Not Resolved]
  - Vision blurred [Unknown]
